FAERS Safety Report 19815616 (Version 2)
Quarter: 2021Q3

REPORT INFORMATION
  Report Type: Spontaneous
  Country: DE (occurrence: DE)
  Receive Date: 20210909
  Receipt Date: 20210916
  Transmission Date: 20211014
  Serious: Yes (Other)
  Sender: FDA-Public Use
  Company Number: NVSC2021DE202330

PATIENT
  Age: 62 Year
  Sex: Male

DRUGS (6)
  1. ETANERCEPT [Suspect]
     Active Substance: ETANERCEPT
     Indication: PSORIATIC ARTHROPATHY
     Dosage: 25?50 MG, Q2W
     Route: 058
  2. ADALIMUMAB [Suspect]
     Active Substance: ADALIMUMAB
     Indication: PSORIATIC ARTHROPATHY
     Dosage: UNK
     Route: 065
  3. ETANERCEPT [Suspect]
     Active Substance: ETANERCEPT
     Dosage: 100 MG, QW
     Route: 058
  4. APREMILAST [Suspect]
     Active Substance: APREMILAST
     Dosage: 30 MG, BID
     Route: 048
  5. ETANERCEPT [Suspect]
     Active Substance: ETANERCEPT
     Dosage: 75 MG, QW
     Route: 058
  6. APREMILAST [Suspect]
     Active Substance: APREMILAST
     Indication: PSORIATIC ARTHROPATHY
     Dosage: 30 MG, QD
     Route: 048

REACTIONS (4)
  - Gastrointestinal disorder [Unknown]
  - Therapeutic response unexpected [Unknown]
  - Psoriatic arthropathy [Recovering/Resolving]
  - Drug ineffective [Unknown]
